FAERS Safety Report 18957635 (Version 1)
Quarter: 2021Q1

REPORT INFORMATION
  Report Type: Spontaneous
  Country: US (occurrence: US)
  Receive Date: 20210301
  Receipt Date: 20210301
  Transmission Date: 20210420
  Serious: No
  Sender: FDA-Public Use
  Company Number: None

PATIENT
  Age: 86 Year
  Sex: Male
  Weight: 98 kg

DRUGS (1)
  1. LORAZEPAM (LORAZEPAM 2MG/ML INJ) [Suspect]
     Active Substance: LORAZEPAM
     Indication: AGITATION
     Route: 042
     Dates: start: 20200416, end: 20200416

REACTIONS (3)
  - Confusional state [None]
  - Delirium [None]
  - Agitation [None]

NARRATIVE: CASE EVENT DATE: 20200417
